FAERS Safety Report 4405691-7 (Version None)
Quarter: 2004Q3

REPORT INFORMATION
  Report Type: 
  Country: None (occurrence: None)
  Receive Date: 20040723
  Receipt Date: 20031114
  Transmission Date: 20050211
  Serious: No
  Sender: FDA-Public Use
  Company Number: US-GLAXOSMITHKLINE-A0439822A

PATIENT
  Age: 62 Year
  Sex: Female

DRUGS (3)
  1. AVANDIA [Suspect]
     Dosage: 4MG TWICE PER DAY
     Route: 048
     Dates: start: 20030101, end: 20031117
  2. SEREVENT [Concomitant]
  3. FLOVENT [Concomitant]

REACTIONS (8)
  - ABDOMINAL DISTENSION [None]
  - BLOOD PRESSURE INCREASED [None]
  - DYSPNOEA [None]
  - JOINT SWELLING [None]
  - MENTAL IMPAIRMENT [None]
  - URINE OUTPUT INCREASED [None]
  - VISUAL DISTURBANCE [None]
  - WEIGHT INCREASED [None]
